FAERS Safety Report 7467001-0 (Version None)
Quarter: 2011Q2

REPORT INFORMATION
  Report Type: 
  Country: None (occurrence: None)
  Receive Date: 20110509
  Receipt Date: 20110426
  Transmission Date: 20111010
  Serious: Yes (Other)
  Sender: FDA-Public Use
  Company Number: CA-JNJFOC-20110312846

PATIENT
  Sex: Female
  Weight: 53.9 kg

DRUGS (14)
  1. VITAMIN TAB [Concomitant]
     Route: 065
  2. VITAMIN D [Concomitant]
     Route: 065
  3. CALCIUM [Concomitant]
     Route: 065
  4. ATORVASTATIN [Concomitant]
     Route: 065
  5. PENTASA [Concomitant]
     Route: 065
  6. IRON [Concomitant]
     Route: 065
  7. REMICADE [Suspect]
     Indication: COLITIS ULCERATIVE
     Route: 042
  8. REMICADE [Suspect]
     Route: 042
  9. MAGNESIUM [Concomitant]
     Route: 065
  10. LIPITOR [Concomitant]
     Route: 065
  11. FELODIPINE [Concomitant]
     Route: 065
  12. LORATADINE [Concomitant]
     Route: 065
  13. AVAPRO [Concomitant]
     Route: 065
  14. ZINC [Concomitant]
     Route: 065

REACTIONS (8)
  - BACK PAIN [None]
  - CONSTIPATION [None]
  - PRURITUS [None]
  - ASTHENIA [None]
  - HEADACHE [None]
  - GASTROINTESTINAL HAEMORRHAGE [None]
  - DIARRHOEA [None]
  - URTICARIA [None]
